FAERS Safety Report 19020904 (Version 1)
Quarter: 2021Q1

REPORT INFORMATION
  Report Type: Spontaneous
  Country: US (occurrence: US)
  Receive Date: 20210317
  Receipt Date: 20210317
  Transmission Date: 20210420
  Serious: Yes (Life-Threatening, Hospitalization)
  Sender: FDA-Public Use
  Company Number: US-STRIDES ARCOLAB LIMITED-2020SP016662

PATIENT
  Age: 27 Year
  Sex: Male

DRUGS (2)
  1. PREDNISOLONE. [Suspect]
     Active Substance: PREDNISOLONE
     Dosage: UNK (TAPERING)
     Route: 065
  2. PREDNISOLONE. [Suspect]
     Active Substance: PREDNISOLONE
     Indication: TRANSPLANT
     Dosage: UNK
     Route: 065

REACTIONS (4)
  - Post transplant lymphoproliferative disorder [Not Recovered/Not Resolved]
  - Clostridium difficile infection [Unknown]
  - Graft versus host disease in gastrointestinal tract [Unknown]
  - Salmonellosis [Unknown]
